FAERS Safety Report 12508763 (Version 1)
Quarter: 2016Q2

REPORT INFORMATION
  Report Type: Spontaneous
  Country: US (occurrence: US)
  Receive Date: 20160629
  Receipt Date: 20160629
  Transmission Date: 20160815
  Serious: No
  Sender: FDA-Public Use
  Company Number: US-ACTAVIS-2015-24521

PATIENT
  Age: 30 Year
  Sex: Female

DRUGS (2)
  1. DEXTROAMPHETAMINE-AMPHETAMINE (AELLC) [Suspect]
     Active Substance: DEXTROAMPHETAMINE
     Indication: ATTENTION DEFICIT/HYPERACTIVITY DISORDER
     Dosage: 15 MG, BID
     Route: 048
     Dates: start: 201507, end: 201508
  2. WELLBUTRIN [Concomitant]
     Active Substance: BUPROPION HYDROCHLORIDE
     Indication: PRODUCT USED FOR UNKNOWN INDICATION
     Dosage: UNK, UNKNOWN
     Route: 065

REACTIONS (4)
  - Irritability [Recovering/Resolving]
  - Drug withdrawal syndrome [Recovering/Resolving]
  - Fatigue [Recovering/Resolving]
  - Somnolence [Recovering/Resolving]

NARRATIVE: CASE EVENT DATE: 201507
